FAERS Safety Report 8226342-X (Version None)
Quarter: 2012Q1

REPORT INFORMATION
  Report Type: 
  Country: None (occurrence: None)
  Receive Date: 20120321
  Receipt Date: 20120314
  Transmission Date: 20120608
  Serious: Yes (Hospitalization)
  Sender: FDA-Public Use
  Company Number: JP-VERTEX PHARMACEUTICALS INC.-AE-2012-003757

PATIENT
  Age: 66 Year
  Sex: Female

DRUGS (8)
  1. MICARDIS [Concomitant]
     Route: 048
     Dates: start: 20120207, end: 20120221
  2. RIBAVIRIN [Concomitant]
     Indication: HEPATITIS C
     Route: 048
     Dates: start: 20120127, end: 20120225
  3. AMLODIPINE [Concomitant]
     Route: 048
     Dates: start: 20120207, end: 20120221
  4. TELAVIC (TELAPREVIR) [Suspect]
     Indication: HEPATITIS C
     Route: 048
     Dates: start: 20120127, end: 20120225
  5. PEGASYS [Concomitant]
     Indication: HEPATITIS C
     Route: 051
     Dates: start: 20120127, end: 20120217
  6. ARICEPT [Concomitant]
     Route: 048
     Dates: start: 20120207, end: 20120221
  7. LOXONIN [Concomitant]
     Route: 048
     Dates: end: 20120209
  8. LASIX [Concomitant]
     Dates: start: 20120211

REACTIONS (1)
  - DEPRESSIVE SYMPTOM [None]
